FAERS Safety Report 8581117 (Version 2)
Quarter: 2013Q3

REPORT INFORMATION
  Report Type: Spontaneous
  Country: US (occurrence: US)
  Receive Date: 20120525
  Receipt Date: 20130829
  Transmission Date: 20140515
  Serious: No
  Sender: FDA-Public Use
  Company Number: US-BRISTOL-MYERS SQUIBB COMPANY-16415531

PATIENT
  Age: 67 Year
  Sex: Female

DRUGS (11)
  1. KOMBIGLYZE XR [Suspect]
     Dosage: 1DF:2.5/1000MG FOR TWO YEARS
  2. HYZAAR [Concomitant]
  3. PRAVASTATINE [Concomitant]
  4. ACIPHEX [Concomitant]
  5. VITAMINS [Concomitant]
  6. GLUMETZA [Concomitant]
  7. FLONASE [Concomitant]
  8. LOSARTAN [Concomitant]
     Dosage: 1DF:50/12.5MG
  9. VITAMIN D3 [Concomitant]
  10. ASPIRIN [Concomitant]
  11. AZELASTINE [Concomitant]

REACTIONS (8)
  - Lip swelling [Unknown]
  - Asthenia [Unknown]
  - Somnolence [Unknown]
  - Fungal infection [Unknown]
  - Dizziness [Unknown]
  - Malaise [Unknown]
  - Yawning [Unknown]
  - Flatulence [Unknown]
